FAERS Safety Report 5196927-6 (Version None)
Quarter: 2006Q4

REPORT INFORMATION
  Report Type: 
  Country: None (occurrence: None)
  Receive Date: 20061227
  Receipt Date: 20061214
  Transmission Date: 20070319
  Serious: Yes (Other)
  Sender: FDA-Public Use
  Company Number: 2006154111

PATIENT
  Age: 35 Year
  Sex: Female
  Weight: 83.9154 kg

DRUGS (3)
  1. CELEBREX [Suspect]
     Indication: MUSCLE SPASMS
     Dosage: (200 MG)
  2. CELEBREX [Suspect]
     Indication: MYALGIA
     Dosage: (200 MG)
  3. DRUG, UNSPECIFIED [Concomitant]

REACTIONS (5)
  - DEFORMITY [None]
  - DUODENAL ULCER [None]
  - GASTRIC DISORDER [None]
  - HAEMORRHAGE [None]
  - OEDEMA [None]
